FAERS Safety Report 8386359-1 (Version None)
Quarter: 2012Q2

REPORT INFORMATION
  Report Type: 
  Country: None (occurrence: None)
  Receive Date: 20120525
  Receipt Date: 20120515
  Transmission Date: 20120825
  Serious: Yes (Other)
  Sender: FDA-Public Use
  Company Number: CA-JNJFOC-20120513494

PATIENT
  Sex: Female
  Weight: 60 kg

DRUGS (7)
  1. REMICADE [Suspect]
     Indication: RHEUMATOID ARTHRITIS
     Dosage: 107TH INFUSION
     Route: 042
     Dates: start: 20120513
  2. HYDROXYCHLOROQUINE SULFATE [Concomitant]
     Route: 065
  3. FLOVENT [Concomitant]
     Route: 065
  4. VENTOLIN [Concomitant]
     Route: 065
  5. AMITRIPTYLINE HCL [Concomitant]
     Route: 065
  6. REMICADE [Suspect]
     Route: 042
     Dates: start: 20051001
  7. METHOTREXATE [Concomitant]
     Route: 065

REACTIONS (1)
  - GALLBLADDER DISORDER [None]
